FAERS Safety Report 7148118-7 (Version None)
Quarter: 2010Q4

REPORT INFORMATION
  Report Type: 
  Country: None (occurrence: None)
  Receive Date: 20101209
  Receipt Date: 20101202
  Transmission Date: 20110411
  Serious: Yes (Other)
  Sender: FDA-Public Use
  Company Number: IE-PFIZER INC-2010162287

PATIENT
  Age: 69 Year
  Sex: Female

DRUGS (3)
  1. ISTIN [Suspect]
     Dosage: 10 MG, UNK
  2. QUESTRAN [Concomitant]
  3. NATRILIX [Concomitant]

REACTIONS (3)
  - COUGH [None]
  - OEDEMA PERIPHERAL [None]
  - WHEEZING [None]
